FAERS Safety Report 16440373 (Version 1)
Quarter: 2019Q3

REPORT INFORMATION
  Report Type: Spontaneous
  Country: US (occurrence: US)
  Receive Date: 20190617
  Receipt Date: 20190617
  Transmission Date: 20191004
  Serious: Yes (Hospitalization)
  Sender: FDA-Public Use
  Company Number: None

PATIENT
  Age: 24 Year
  Sex: Male

DRUGS (4)
  1. GLEOSTINE [Suspect]
     Active Substance: LOMUSTINE
     Indication: BRAIN NEOPLASM MALIGNANT
     Dosage: ?          OTHER FREQUENCY:EVERY 6 WEEKS;?
     Route: 048
     Dates: start: 20190319
  2. MATULANE [Concomitant]
     Active Substance: PROCARBAZINE HYDROCHLORIDE
     Dates: start: 20190216
  3. TOPAMAX [Concomitant]
     Active Substance: TOPIRAMATE
     Dates: start: 20190614
  4. KEPPRA [Concomitant]
     Active Substance: LEVETIRACETAM
     Dates: start: 20190212

REACTIONS (1)
  - Panic attack [None]
